FAERS Safety Report 8531619-4 (Version None)
Quarter: 2012Q3

REPORT INFORMATION
  Report Type: 
  Country: None (occurrence: None)
  Receive Date: 20120723
  Receipt Date: 20120712
  Transmission Date: 20120928
  Serious: Yes (Other)
  Sender: FDA-Public Use
  Company Number: DE-BAXTER-2012BAX011202

PATIENT
  Age: 19 Year
  Sex: Male

DRUGS (5)
  1. ADVATE [Suspect]
     Route: 042
     Dates: start: 20120206
  2. ADVATE [Suspect]
     Route: 042
     Dates: start: 20120203
  3. ADVATE [Suspect]
     Indication: PROPHYLAXIS
     Route: 042
     Dates: start: 20120201
  4. ADVATE [Suspect]
     Route: 042
     Dates: start: 20120208
  5. ADVATE [Concomitant]
     Route: 042

REACTIONS (1)
  - RENAL HAEMORRHAGE [None]
